FAERS Safety Report 5920945-0 (Version None)
Quarter: 2008Q4

REPORT INFORMATION
  Report Type: 
  Country: None (occurrence: None)
  Receive Date: 20081016
  Receipt Date: 20081006
  Transmission Date: 20090506
  Serious: Yes (Hospitalization)
  Sender: FDA-Public Use
  Company Number: FR-JNJFOC-20081001306

PATIENT
  Age: 51 Year
  Sex: Male

DRUGS (8)
  1. IMODIUM [Suspect]
     Indication: DIARRHOEA
     Route: 048
  2. ACETAMINOPHEN [Suspect]
     Route: 048
  3. ACETAMINOPHEN [Suspect]
     Indication: PAIN
     Route: 048
  4. NEXIUM [Suspect]
     Indication: DRUG USE FOR UNKNOWN INDICATION
     Route: 048
  5. RIFINAH [Suspect]
     Indication: SKIN TEST POSITIVE
     Route: 048
  6. NAPROSYN [Suspect]
     Indication: ANKYLOSING SPONDYLITIS
     Route: 048
  7. CRESTOR [Suspect]
     Indication: DRUG USE FOR UNKNOWN INDICATION
     Route: 048
  8. MONOCRIXO [Concomitant]

REACTIONS (2)
  - ARTHRITIS [None]
  - LEUKOCYTOCLASTIC VASCULITIS [None]
